FAERS Safety Report 9970782 (Version 2)
Quarter: 2014Q1

REPORT INFORMATION
  Report Type: Report from Study
  Country: PR (occurrence: PR)
  Receive Date: 20140306
  Receipt Date: 20140306
  Transmission Date: 20141002
  Serious: No
  Sender: FDA-Public Use
  Company Number: PR-ABBVIE-12P-131-0917672-00

PATIENT
  Age: 47 Year
  Sex: Female
  Weight: 59.02 kg

DRUGS (6)
  1. HUMIRA [Suspect]
     Indication: PSORIATIC ARTHROPATHY
     Route: 058
     Dates: start: 201201, end: 201206
  2. NAPRELAN [Concomitant]
     Indication: PAIN
     Route: 048
  3. SYNTHYROID [Concomitant]
     Indication: HYPOTHYROIDISM
     Route: 048
  4. ZANTAC [Concomitant]
     Indication: PROPHYLAXIS
     Dosage: AT NIGHT
     Route: 048
  5. PROTONIX [Concomitant]
     Indication: PROPHYLAXIS
     Dosage: AT MORNING
     Route: 048
  6. FOLIC ACID [Concomitant]
     Indication: SUPPLEMENTATION THERAPY
     Route: 048

REACTIONS (2)
  - Nasopharyngitis [Unknown]
  - Drug ineffective [Recovered/Resolved]
